FAERS Safety Report 8510769 (Version 2)
Quarter: 2013Q1

REPORT INFORMATION
  Report Type: Spontaneous
  Country: US (occurrence: US)
  Receive Date: 20120413
  Receipt Date: 20130228
  Transmission Date: 20140127
  Serious: Yes (Hospitalization)
  Sender: FDA-Public Use
  Company Number: US-GLAXOSMITHKLINE-A0751458A

PATIENT
  Age: 44 Year
  Sex: Male
  Weight: 143.2 kg

DRUGS (5)
  1. AVANDIA [Suspect]
     Indication: TYPE 2 DIABETES MELLITUS
     Dosage: 8MG PER DAY
     Route: 048
     Dates: start: 20000328, end: 200608
  2. PRILOSEC [Concomitant]
  3. GLUCOTROL XL [Concomitant]
  4. GLIPIZIDE [Concomitant]
  5. TRICOR [Concomitant]

REACTIONS (4)
  - Ischaemic cerebral infarction [Unknown]
  - Brain oedema [Unknown]
  - Carotid artery stenosis [Unknown]
  - Hypertension [Unknown]
